FAERS Safety Report 8096742-X (Version None)
Quarter: 2012Q1

REPORT INFORMATION
  Report Type: 
  Country: None (occurrence: None)
  Receive Date: 20120129
  Receipt Date: 20111220
  Transmission Date: 20120608
  Serious: No
  Sender: FDA-Public Use
  Company Number: US-ABBOTT-11P-163-0857819-00

PATIENT
  Sex: Female

DRUGS (2)
  1. HUMIRA [Suspect]
     Indication: RHEUMATOID ARTHRITIS
     Route: 058
     Dates: start: 20100701
  2. HUMIRA [Suspect]
     Route: 058
     Dates: start: 20110601

REACTIONS (4)
  - SLEEP DISORDER [None]
  - FOOD AVERSION [None]
  - SOMNOLENCE [None]
  - INJECTION SITE ERYTHEMA [None]
